FAERS Safety Report 25811681 (Version 1)
Quarter: 2025Q3

REPORT INFORMATION
  Report Type: Spontaneous
  Country: GB (occurrence: GB)
  Receive Date: 20250917
  Receipt Date: 20250917
  Transmission Date: 20251020
  Serious: Yes (Other)
  Sender: MICRO LABS
  Company Number: GB-MHRA-TPP23146915C2182674YC1757057500386

PATIENT
  Age: 72 Year
  Sex: Male
  Weight: 78 kg

DRUGS (7)
  1. ATORVASTATIN [Suspect]
     Active Substance: ATORVASTATIN
     Indication: Product used for unknown indication
  2. FLUTICASONE PROPIONATE [Concomitant]
     Active Substance: FLUTICASONE PROPIONATE
     Indication: Ill-defined disorder
     Dates: start: 20200317
  3. SILDENAFIL [Concomitant]
     Active Substance: SILDENAFIL
     Indication: Ill-defined disorder
     Dates: start: 20230220
  4. AMLODIPINE [Concomitant]
     Active Substance: AMLODIPINE BESYLATE
     Indication: Ill-defined disorder
     Dates: start: 20230306
  5. BENDROFLUMETHIAZIDE [Concomitant]
     Active Substance: BENDROFLUMETHIAZIDE
     Indication: Ill-defined disorder
     Dates: start: 20240511
  6. PRAVASTATIN [Concomitant]
     Active Substance: PRAVASTATIN
     Indication: Ill-defined disorder
     Dates: start: 20250326
  7. TAMSULOSIN HYDROCHLORIDE [Concomitant]
     Active Substance: TAMSULOSIN HYDROCHLORIDE
     Indication: Ill-defined disorder
     Dates: start: 20250417

REACTIONS (1)
  - Disorientation [Recovered/Resolved]
